FAERS Safety Report 4822108-9 (Version None)
Quarter: 2005Q4

REPORT INFORMATION
  Report Type: 
  Country: None (occurrence: None)
  Receive Date: 20051103
  Receipt Date: 20051019
  Transmission Date: 20060501
  Serious: Yes (Hospitalization, Congenital Anomaly)
  Sender: FDA-Public Use
  Company Number: FR_051007355

PATIENT
  Age: 1 Week

DRUGS (2)
  1. ZYPREXA [Suspect]
  2. TERCIAN (CYAMEMAZINE) [Concomitant]

REACTIONS (6)
  - CONGENITAL CENTRAL NERVOUS SYSTEM ANOMALY [None]
  - DRUG EXPOSURE DURING PREGNANCY [None]
  - HIP DYSPLASIA [None]
  - MULTIPLE CONGENITAL ABNORMALITIES [None]
  - NEONATAL INTESTINAL OBSTRUCTION [None]
  - VOCAL CORD PARALYSIS [None]
